FAERS Safety Report 8043414-3 (Version None)
Quarter: 2012Q1

REPORT INFORMATION
  Report Type: 
  Country: None (occurrence: None)
  Receive Date: 20120112
  Receipt Date: 20120110
  Transmission Date: 20120608
  Serious: Yes (Hospitalization)
  Sender: FDA-Public Use
  Company Number: PHHO2011NL07975

PATIENT
  Sex: Female
  Weight: 62 kg

DRUGS (4)
  1. FLUOROURACIL [Suspect]
     Dosage: UNK
     Dates: start: 20110111
  2. EPIRUBICIN [Suspect]
     Dosage: UNK
     Dates: start: 20110111
  3. NO TREATMENT RECEIVED [Suspect]
     Indication: BREAST CANCER
     Dosage: NO TREATMENT
  4. CYCLOPHOSPHAMIDE [Suspect]
     Dosage: UNK
     Dates: start: 20110111

REACTIONS (2)
  - RESPIRATORY TRACT INFECTION [None]
  - ORAL CANDIDIASIS [None]
